FAERS Safety Report 17153577 (Version 1)
Quarter: 2019Q4

REPORT INFORMATION
  Report Type: Spontaneous
  Country: US (occurrence: US)
  Receive Date: 20191213
  Receipt Date: 20191213
  Transmission Date: 20200122
  Serious: No
  Sender: FDA-Public Use
  Company Number: US-ENDO PHARMACEUTICALS INC-2019-108857

PATIENT
  Age: 47 Year
  Sex: Male
  Weight: 91.61 kg

DRUGS (2)
  1. LISINOPRIL HCTZ [Concomitant]
     Active Substance: HYDROCHLOROTHIAZIDE\LISINOPRIL
     Indication: HYPERTENSION
     Dosage: UNK
     Dates: end: 20191008
  2. TESTIM [Suspect]
     Active Substance: TESTOSTERONE
     Indication: BLOOD TESTOSTERONE DECREASED
     Dosage: 50 MG, UNK ON SHOULDERS DAILY
     Route: 061
     Dates: start: 201907

REACTIONS (12)
  - Mouth breathing [Unknown]
  - Apathy [Unknown]
  - Asthenia [Unknown]
  - Weight increased [Unknown]
  - Fatigue [Unknown]
  - Irritability [Unknown]
  - Drug ineffective [Unknown]
  - Muscle hypertrophy [Unknown]
  - Feeling abnormal [Unknown]
  - Disturbance in attention [Unknown]
  - Blood testosterone decreased [Unknown]
  - Libido decreased [Unknown]

NARRATIVE: CASE EVENT DATE: 2019
